FAERS Safety Report 13717185 (Version 1)
Quarter: 2017Q3

REPORT INFORMATION
  Report Type: Spontaneous
  Country: US (occurrence: US)
  Receive Date: 20170703
  Receipt Date: 20170703
  Transmission Date: 20171127
  Serious: No
  Sender: FDA-Public Use
  Company Number: None

PATIENT
  Age: 41 Year
  Sex: Female

DRUGS (3)
  1. PROGESTERONE IN SESAME OIL 50MG/ML WEST-WARD PHARMACEUTICAL CORP, A SUBSIDIARY OF HIKMA [Suspect]
     Active Substance: PROGESTERONE
     Indication: ABORTION SPONTANEOUS
     Route: 030
     Dates: start: 20170512, end: 20170629
  2. PROGESTERONE IN SESAME OIL 50MG/ML WEST-WARD PHARMACEUTICAL CORP, A SUBSIDIARY OF HIKMA [Suspect]
     Active Substance: PROGESTERONE
     Indication: PROPHYLAXIS
     Route: 030
     Dates: start: 20170512, end: 20170629
  3. PROGESTERONE IN SESAME OIL 50MG/ML WEST-WARD PHARMACEUTICAL CORP, A SUBSIDIARY OF HIKMA [Suspect]
     Active Substance: PROGESTERONE
     Indication: ASSISTED FERTILISATION
     Route: 030
     Dates: start: 20170512, end: 20170629

REACTIONS (3)
  - Urticaria [None]
  - Pruritus [None]
  - Reaction to excipient [None]

NARRATIVE: CASE EVENT DATE: 20170622
